FAERS Safety Report 5765853-3 (Version None)
Quarter: 2008Q2

REPORT INFORMATION
  Report Type: 
  Country: None (occurrence: None)
  Receive Date: 20080611
  Receipt Date: 20080530
  Transmission Date: 20081010
  Serious: Yes (Other)
  Sender: FDA-Public Use
  Company Number: ES-PFIZER INC-2008018744

PATIENT
  Age: 85 Year
  Sex: Female

DRUGS (5)
  1. NEURONTIN [Suspect]
     Dosage: DAILY DOSE:1GRAM
     Route: 048
     Dates: start: 20071023, end: 20071212
  2. RISPERDAL [Suspect]
     Indication: DEMENTIA
     Route: 048
     Dates: start: 20071009, end: 20071212
  3. RENITEC [Concomitant]
     Route: 048
  4. DISGREN [Concomitant]
     Route: 048
  5. PANTOPRAZOLE SODIUM [Concomitant]
     Route: 048

REACTIONS (2)
  - SEDATION [None]
  - SOMNOLENCE [None]
